FAERS Safety Report 16220585 (Version 1)
Quarter: 2019Q2

REPORT INFORMATION
  Report Type: Spontaneous
  Country: US (occurrence: US)
  Receive Date: 20190421
  Receipt Date: 20190421
  Transmission Date: 20190711
  Serious: No
  Sender: FDA-Public Use
  Company Number: US-JNJFOC-20190339907

PATIENT

DRUGS (2)
  1. ZYRTEC [Suspect]
     Active Substance: CETIRIZINE HYDROCHLORIDE
     Route: 065
  2. ZYRTEC [Suspect]
     Active Substance: CETIRIZINE HYDROCHLORIDE
     Indication: PRODUCT USED FOR UNKNOWN INDICATION
     Dosage: ABOUT 15 YEARS
     Route: 065

REACTIONS (5)
  - Pruritus [Recovered/Resolved]
  - Nausea [Unknown]
  - Vomiting [Unknown]
  - Urticaria [Unknown]
  - Dizziness [Recovered/Resolved]
